FAERS Safety Report 13538508 (Version 6)
Quarter: 2018Q4

REPORT INFORMATION
  Report Type: Report from Study
  Country: CA (occurrence: CA)
  Receive Date: 20170512
  Receipt Date: 20181003
  Transmission Date: 20190204
  Serious: Yes (Hospitalization, Other)
  Sender: FDA-Public Use
  Company Number: CA-ROCHE-1931759

PATIENT
  Age: 81 Year
  Sex: Female
  Weight: 47.5 kg

DRUGS (13)
  1. ACTEMRA [Suspect]
     Active Substance: TOCILIZUMAB
     Dosage: WEIGHT X 4MG/KG
     Route: 042
     Dates: start: 20170721
  2. PREDNISONE. [Concomitant]
     Active Substance: PREDNISONE
  3. ACTEMRA [Suspect]
     Active Substance: TOCILIZUMAB
     Dosage: WEIGHT X 4MG/KG
     Route: 042
     Dates: start: 20170620
  4. COSOPT [Concomitant]
     Active Substance: DORZOLAMIDE HYDROCHLORIDE\TIMOLOL MALEATE
  5. ATENOLOL. [Concomitant]
     Active Substance: ATENOLOL
  6. ACTEMRA [Suspect]
     Active Substance: TOCILIZUMAB
     Indication: TEMPORAL ARTERITIS
     Dosage: WEIGHT X 4MG/KG
     Route: 042
     Dates: start: 20170523
  7. ACTEMRA [Suspect]
     Active Substance: TOCILIZUMAB
     Dosage: WEIGHT X 4MG/KG
     Route: 042
     Dates: start: 20170914
  8. ACTEMRA [Suspect]
     Active Substance: TOCILIZUMAB
     Indication: POLYMYALGIA RHEUMATICA
     Dosage: WEIGHT X 8MG/KG
     Route: 042
     Dates: start: 20170424
  9. VENTOLIN [Concomitant]
     Active Substance: ALBUTEROL SULFATE
  10. NIFEDIPINE. [Concomitant]
     Active Substance: NIFEDIPINE
  11. ACTEMRA [Suspect]
     Active Substance: TOCILIZUMAB
     Dosage: WEIGHT X 4MG/KG
     Route: 042
     Dates: start: 20170817
  12. ATORVASTATIN [Concomitant]
     Active Substance: ATORVASTATIN
  13. ENALAPRIL [Concomitant]
     Active Substance: ENALAPRIL

REACTIONS (10)
  - Diverticulum intestinal haemorrhagic [Unknown]
  - Bundle branch block left [Unknown]
  - Blood pressure increased [Unknown]
  - Neutrophil count increased [Unknown]
  - Weight increased [Unknown]
  - Defaecation urgency [Unknown]
  - White blood cell count increased [Unknown]
  - Red cell distribution width increased [Unknown]
  - Weight decreased [Unknown]
  - Dizziness [Unknown]

NARRATIVE: CASE EVENT DATE: 20170504
